FAERS Safety Report 7575007-6 (Version None)
Quarter: 2011Q2

REPORT INFORMATION
  Report Type: 
  Country: None (occurrence: None)
  Receive Date: 20110627
  Receipt Date: 20110208
  Transmission Date: 20111010
  Serious: Yes (Other)
  Sender: FDA-Public Use
  Company Number: US-BAYER-2010-007218

PATIENT
  Age: 62 Year
  Sex: Male
  Weight: 180 kg

DRUGS (2)
  1. BETASERON [Suspect]
     Indication: MULTIPLE SCLEROSIS
     Dosage: 6 MIU, QOD
     Route: 058
     Dates: start: 20101122
  2. BACLOFEN [Concomitant]
     Dosage: 10 MG, UNK
     Route: 048

REACTIONS (2)
  - SUICIDAL IDEATION [None]
  - DEPRESSION [None]
